FAERS Safety Report 4420788-3 (Version None)
Quarter: 2004Q3

REPORT INFORMATION
  Report Type: 
  Country: None (occurrence: None)
  Receive Date: 20040809
  Receipt Date: 20040528
  Transmission Date: 20050211
  Serious: No
  Sender: FDA-Public Use
  Company Number: US-GLAXOSMITHKLINE-A0512622A

PATIENT
  Sex: Female

DRUGS (5)
  1. PAXIL [Suspect]
     Indication: SLEEP DISORDER
     Dosage: 20MG PER DAY
     Route: 048
  2. DIURETIC [Concomitant]
  3. AMBIEN [Concomitant]
  4. VITAMIN C [Concomitant]
  5. ASPIRIN [Concomitant]

REACTIONS (5)
  - ABDOMINAL DISTENSION [None]
  - GASTROOESOPHAGEAL REFLUX DISEASE [None]
  - INSOMNIA [None]
  - PAIN [None]
  - WEIGHT INCREASED [None]
